FAERS Safety Report 7945596-8 (Version None)
Quarter: 2011Q4

REPORT INFORMATION
  Report Type: 
  Country: None (occurrence: None)
  Receive Date: 20111129
  Receipt Date: 20111121
  Transmission Date: 20120403
  Serious: Yes (Life-Threatening, Other)
  Sender: FDA-Public Use
  Company Number: FR-ROXANE LABORATORIES, INC.-2011-RO-01662RO

PATIENT
  Age: 54 Year
  Sex: Female

DRUGS (4)
  1. ALCOHOL [Suspect]
     Route: 048
  2. ZOPICLONE [Suspect]
     Indication: MAJOR DEPRESSION
     Dosage: 7.5 MG
  3. CITALOPRAM [Suspect]
     Indication: MAJOR DEPRESSION
     Dosage: 20 MG
     Route: 048
  4. CITALOPRAM [Suspect]
     Route: 048

REACTIONS (9)
  - VENTRICULAR FIBRILLATION [None]
  - HYPERLACTACIDAEMIA [None]
  - METABOLIC ACIDOSIS [None]
  - VENTRICULAR TACHYCARDIA [None]
  - INTENTIONAL OVERDOSE [None]
  - CONVULSION [None]
  - ELECTROCARDIOGRAM QT PROLONGED [None]
  - BUNDLE BRANCH BLOCK LEFT [None]
  - HYPOKALAEMIA [None]
